FAERS Safety Report 7977718-7 (Version None)
Quarter: 2011Q4

REPORT INFORMATION
  Report Type: 
  Country: None (occurrence: None)
  Receive Date: 20111214
  Receipt Date: 20111128
  Transmission Date: 20120403
  Serious: No
  Sender: FDA-Public Use
  Company Number: US-AMGEN-USASP2011056187

PATIENT
  Age: 46 Year
  Sex: Female

DRUGS (1)
  1. ENBREL [Suspect]
     Indication: RHEUMATOID ARTHRITIS
     Dosage: 50 MG, QWK
     Dates: start: 20111013, end: 20111110

REACTIONS (5)
  - FATIGUE [None]
  - DIZZINESS [None]
  - MENORRHAGIA [None]
  - LIGAMENT SPRAIN [None]
  - CONTUSION [None]
